FAERS Safety Report 5629405-8 (Version None)
Quarter: 2008Q1

REPORT INFORMATION
  Report Type: 
  Country: None (occurrence: None)
  Receive Date: 20080215
  Receipt Date: 20080215
  Transmission Date: 20080703
  Serious: No
  Sender: FDA-Public Use
  Company Number: None

PATIENT

DRUGS (4)
  1. AVANDAMET [Suspect]
     Indication: DIZZINESS
     Dosage: 1 TWICE A DAY   (THERAPY DATES: FROM JUNE OR JULY 2007)
     Dates: start: 20070601
  2. AVANDAMET [Suspect]
     Indication: PYREXIA
     Dosage: 1 TWICE A DAY   (THERAPY DATES: FROM JUNE OR JULY 2007)
     Dates: start: 20070601
  3. AVANDAMET [Suspect]
     Indication: DIZZINESS
     Dosage: 1 TWICE A DAY   (THERAPY DATES: FROM JUNE OR JULY 2007)
     Dates: start: 20080101
  4. AVANDAMET [Suspect]
     Indication: PYREXIA
     Dosage: 1 TWICE A DAY   (THERAPY DATES: FROM JUNE OR JULY 2007)
     Dates: start: 20080101

REACTIONS (9)
  - ABDOMINAL DISTENSION [None]
  - CHILLS [None]
  - DIZZINESS [None]
  - HEADACHE [None]
  - MUSCLE TWITCHING [None]
  - PAIN [None]
  - PAIN IN EXTREMITY [None]
  - PYREXIA [None]
  - VISUAL ACUITY REDUCED [None]
